FAERS Safety Report 4450255-2 (Version None)
Quarter: 2004Q3

REPORT INFORMATION
  Report Type: 
  Country: None (occurrence: None)
  Receive Date: 20040914
  Receipt Date: 20040831
  Transmission Date: 20050211
  Serious: Yes (Hospitalization)
  Sender: FDA-Public Use
  Company Number: 2004196375JP

PATIENT
  Age: 61 Year
  Sex: Female
  Weight: 44 kg

DRUGS (9)
  1. CABERGOLINE [Suspect]
     Indication: PARKINSON'S DISEASE
     Dosage: 2 MG, BID , ORAL
     Route: 048
     Dates: start: 20020101, end: 20031220
  2. PERMAX [Suspect]
     Indication: PARKINSON'S DISEASE
     Dosage: ORAL
     Route: 048
     Dates: start: 20010101
  3. MENESIT [Concomitant]
  4. SELEGILINE HYDROCHLORIDE [Concomitant]
  5. ARTANE (TRIPHEXYPHENIDYL HYDROCHLORIDE) [Concomitant]
  6. TAKEPRON [Concomitant]
  7. LUDIOMIL [Concomitant]
  8. ALFAROL (ALFACALIDOL) [Concomitant]
  9. MYONAL (EPERISONE HYDROCHLORIDE) [Concomitant]

REACTIONS (5)
  - DYSTONIA [None]
  - FEELING ABNORMAL [None]
  - HYPERTONIA [None]
  - MUSCULAR WEAKNESS [None]
  - VESTIBULAR NEURONITIS [None]
